FAERS Safety Report 6866055-X (Version None)
Quarter: 2010Q3

REPORT INFORMATION
  Report Type: 
  Country: None (occurrence: None)
  Receive Date: 20100722
  Receipt Date: 20100714
  Transmission Date: 20110219
  Serious: Yes (Other)
  Sender: FDA-Public Use
  Company Number: NL-GENZYME-CLOF-1000994

PATIENT
  Sex: Female
  Weight: 74 kg

DRUGS (9)
  1. EVOLTRA [Suspect]
     Indication: PRODUCT USED FOR UNKNOWN INDICATION
     Dosage: 10.5 MG, UNK
     Route: 042
     Dates: start: 20100511, end: 20100515
  2. CYTARABINE [Suspect]
     Indication: PRODUCT USED FOR UNKNOWN INDICATION
     Dosage: 370 MG, UNK
     Route: 042
     Dates: start: 20100511, end: 20100517
  3. IDARUBICIN HCL [Suspect]
     Indication: PRODUCT USED FOR UNKNOWN INDICATION
     Dosage: 22 MG, UNK
     Route: 042
     Dates: start: 20100511, end: 20100513
  4. IMIPENEM AND CILASTATIN [Concomitant]
     Indication: PRODUCT USED FOR UNKNOWN INDICATION
     Dosage: 2000 MG, UNK
     Route: 042
     Dates: start: 20100507, end: 20100528
  5. TOBRAMYCIN [Concomitant]
     Indication: PROPHYLAXIS
     Dosage: 360 MG, UNK
     Route: 048
     Dates: start: 20100507, end: 20100528
  6. ESOMEPRAZOLE MAGNESIUM [Concomitant]
     Indication: PROPHYLAXIS
     Dosage: 20 MG, UNK
     Route: 042
     Dates: start: 20100517, end: 20100528
  7. TRANEXAMIC ACID [Concomitant]
     Indication: PROPHYLAXIS
     Dosage: 4000 MG, UNK
     Route: 042
     Dates: start: 20100521, end: 20100527
  8. VANCOMYCIN [Concomitant]
     Indication: PYREXIA
     Dosage: 2000 MG, UNK
     Route: 042
     Dates: start: 20100523, end: 20100528
  9. HALOPERIDOL [Concomitant]
     Indication: DELIRIUM
     Dosage: 9 MG, UNK
     Route: 042
     Dates: start: 20100525, end: 20100528

REACTIONS (4)
  - DELIRIUM [None]
  - HAEMATURIA [None]
  - INFECTION [None]
  - PYREXIA [None]
